FAERS Safety Report 21344413 (Version 1)
Quarter: 2022Q3

REPORT INFORMATION
  Report Type: Other
  Country: US (occurrence: US)
  Receive Date: 20220916
  Receipt Date: 20220916
  Transmission Date: 20221027
  Serious: No
  Sender: FDA-Public Use
  Company Number: US-LEADIANT BIOSCIENCES INC-2022STPI000188

PATIENT
  Sex: Male

DRUGS (1)
  1. MATULANE [Suspect]
     Active Substance: PROCARBAZINE HYDROCHLORIDE
     Indication: Brain neoplasm malignant
     Dosage: 50 MILLIGRAM, 2 CAPSULES FOR 15 DAYS ONCE DAILY ON DAYS 8 THROUGH 21 OF EACH 42 DAY CYCLE
     Dates: start: 20220429

REACTIONS (2)
  - Nausea [Unknown]
  - Vomiting [Unknown]
